FAERS Safety Report 10031944 (Version 2)
Quarter: 2014Q1

REPORT INFORMATION
  Report Type: Spontaneous
  Country: JP (occurrence: JP)
  Receive Date: 20140324
  Receipt Date: 20140328
  Transmission Date: 20141002
  Serious: Yes (Death, Hospitalization)
  Sender: FDA-Public Use
  Company Number: JP-DSJP-DSJ-2014-101104

PATIENT
  Sex: 0

DRUGS (7)
  1. OLMETEC [Suspect]
     Indication: HYPERTENSION
     Dosage: 20MG, DAILY
     Route: 065
     Dates: start: 201402, end: 20140218
  2. APIXABAN [Suspect]
     Indication: ATRIAL FIBRILLATION
     Dosage: 2.5 MG, BID
     Route: 065
     Dates: start: 20130825, end: 20140215
  3. APIXABAN [Suspect]
     Indication: CEREBRAL INFARCTION
     Dosage: 2.5 MG, BID
     Route: 065
     Dates: start: 20140218, end: 20140222
  4. TAKEPRON [Suspect]
     Indication: GASTROOESOPHAGEAL REFLUX DISEASE
     Dosage: 15MG,DAILY
     Route: 065
     Dates: start: 20130825, end: 20140215
  5. TAKEPRON [Suspect]
     Dosage: 15MG,DAILY
     Route: 065
     Dates: start: 20140218, end: 20140222
  6. NITRODERM [Suspect]
     Indication: ANGINA PECTORIS
     Dosage: UNK
     Route: 062
     Dates: start: 20140202, end: 20140222
  7. IRBESARTAN AMLODIPINE BESILATE [Suspect]
     Dosage: ??
     Dates: end: 20140222

REACTIONS (2)
  - Extradural haematoma [Fatal]
  - Cerebral haemorrhage [Recovering/Resolving]
